FAERS Safety Report 7863087-X (Version None)
Quarter: 2011Q4

REPORT INFORMATION
  Report Type: 
  Country: None (occurrence: None)
  Receive Date: 20111027
  Receipt Date: 20101124
  Transmission Date: 20120403
  Serious: No
  Sender: FDA-Public Use
  Company Number: US-AMGEN-TCS417791

PATIENT
  Age: 52 Year
  Sex: Female

DRUGS (1)
  1. ENBREL [Suspect]
     Indication: RHEUMATOID ARTHRITIS
     Dosage: 50 MG, QWK
     Route: 058
     Dates: start: 20100518

REACTIONS (9)
  - HYPERHIDROSIS [None]
  - NIGHT SWEATS [None]
  - DERMATITIS [None]
  - INSOMNIA [None]
  - BLEPHARITIS [None]
  - PARAESTHESIA [None]
  - VERTIGO [None]
  - FEELING ABNORMAL [None]
  - ACNE [None]
